FAERS Safety Report 5957743-8 (Version None)
Quarter: 2008Q4

REPORT INFORMATION
  Report Type: 
  Country: None (occurrence: None)
  Receive Date: 20081119
  Receipt Date: 20081113
  Transmission Date: 20090506
  Serious: Yes (Other)
  Sender: FDA-Public Use
  Company Number: US-JNJFOC-20070405694

PATIENT
  Sex: Female
  Weight: 60.33 kg

DRUGS (3)
  1. REMICADE [Suspect]
     Indication: CROHN'S DISEASE
     Route: 042
  2. BENADRYL [Concomitant]
     Indication: PREMEDICATION
  3. TYLENOL (CAPLET) [Concomitant]
     Indication: PREMEDICATION

REACTIONS (27)
  - ALANINE AMINOTRANSFERASE INCREASED [None]
  - ASPARTATE AMINOTRANSFERASE INCREASED [None]
  - COUGH [None]
  - CROHN'S DISEASE [None]
  - DEMYELINATION [None]
  - DEPRESSION [None]
  - DRUG LEVEL BELOW THERAPEUTIC [None]
  - DRUG SPECIFIC ANTIBODY PRESENT [None]
  - EAR PAIN [None]
  - FOOT DEFORMITY [None]
  - HEPATIC ENZYME INCREASED [None]
  - HYDRONEPHROSIS [None]
  - JOINT SPRAIN [None]
  - NECK PAIN [None]
  - NEPHROLITHIASIS [None]
  - OCULAR HYPERAEMIA [None]
  - OROPHARYNGEAL PAIN [None]
  - PERONEAL MUSCULAR ATROPHY [None]
  - PHARYNGITIS STREPTOCOCCAL [None]
  - PYREXIA [None]
  - RESPIRATORY TRACT CONGESTION [None]
  - ROAD TRAFFIC ACCIDENT [None]
  - SINUSITIS [None]
  - SMALL INTESTINAL OBSTRUCTION [None]
  - TONSILLITIS [None]
  - VULVOVAGINAL CANDIDIASIS [None]
  - VULVOVAGINAL MYCOTIC INFECTION [None]
